FAERS Safety Report 21131621 (Version 1)
Quarter: 2022Q3

REPORT INFORMATION
  Report Type: Spontaneous
  Country: CA (occurrence: CA)
  Receive Date: 20220726
  Receipt Date: 20220726
  Transmission Date: 20221027
  Serious: Yes (Other)
  Sender: FDA-Public Use
  Company Number: CA-PFIZER INC-202100999436

PATIENT
  Age: 72 Year
  Sex: Female

DRUGS (3)
  1. LORBRENA [Suspect]
     Active Substance: LORLATINIB
     Indication: Lung adenocarcinoma
     Dosage: 100 MG, DAILY
     Route: 048
     Dates: start: 20220408
  2. LORBRENA [Suspect]
     Active Substance: LORLATINIB
     Dosage: 75 MG DAILY X 40 DAYS
     Route: 048
  3. LORBRENA [Suspect]
     Active Substance: LORLATINIB
     Dosage: 75 MG, DAILY
     Route: 048

REACTIONS (3)
  - Jaundice [Unknown]
  - Neoplasm progression [Not Recovered/Not Resolved]
  - Pain [Unknown]
